FAERS Safety Report 12808729 (Version 3)
Quarter: 2016Q4

REPORT INFORMATION
  Report Type: Report from Study
  Country: CA (occurrence: CA)
  Receive Date: 20161004
  Receipt Date: 20161230
  Transmission Date: 20170207
  Serious: Yes (Other)
  Sender: FDA-Public Use
  Company Number: CA-GILEAD-2016-0235352

PATIENT
  Age: 80 Year
  Sex: Male

DRUGS (7)
  1. PREGABALIN. [Concomitant]
     Active Substance: PREGABALIN
  2. QUETIAPINE. [Concomitant]
     Active Substance: QUETIAPINE
  3. MIRTAZAPINE. [Concomitant]
     Active Substance: MIRTAZAPINE
  4. NIFEDIPINE XL [Concomitant]
     Active Substance: NIFEDIPINE
  5. DOCUSATE [Concomitant]
     Active Substance: DOCUSATE
  6. IDELALISIB [Suspect]
     Active Substance: IDELALISIB
     Indication: NON-HODGKIN^S LYMPHOMA UNSPECIFIED HISTOLOGY INDOLENT
     Dosage: 150 MG, BID
     Route: 048
     Dates: start: 201608
  7. DEXLANSOPRAZOLE [Concomitant]
     Active Substance: DEXLANSOPRAZOLE

REACTIONS (3)
  - Deep vein thrombosis [Recovering/Resolving]
  - Pain in extremity [Not Recovered/Not Resolved]
  - White blood cell count decreased [Unknown]

NARRATIVE: CASE EVENT DATE: 20160902
